FAERS Safety Report 5771418-X (Version None)
Quarter: 2008Q2

REPORT INFORMATION
  Report Type: 
  Country: None (occurrence: None)
  Receive Date: 20080610
  Receipt Date: 20080529
  Transmission Date: 20081010
  Serious: Yes (Other)
  Sender: FDA-Public Use
  Company Number: 48861

PATIENT
  Age: 62 Year
  Sex: Female
  Weight: 62 kg

DRUGS (1)
  1. PACLITAXEL [Suspect]
     Dosage: 250MG IV INFUSION X 1
     Dates: start: 20080529

REACTIONS (1)
  - MEDICATION ERROR [None]
